FAERS Safety Report 14976584 (Version 2)
Quarter: 2018Q3

REPORT INFORMATION
  Report Type: Spontaneous
  Country: US (occurrence: US)
  Receive Date: 20180605
  Receipt Date: 20180821
  Transmission Date: 20181010
  Serious: No
  Sender: FDA-Public Use
  Company Number: US-SA-2018SA026737

PATIENT
  Age: 57 Year
  Sex: Female

DRUGS (3)
  1. AUBAGIO [Suspect]
     Active Substance: TERIFLUNOMIDE
     Dosage: 14 MG,QD
     Route: 048
  2. AUBAGIO [Suspect]
     Active Substance: TERIFLUNOMIDE
     Indication: MULTIPLE SCLEROSIS
     Dosage: 14 MG,QD
     Route: 048
     Dates: start: 20180203
  3. AVONEX [Concomitant]
     Active Substance: INTERFERON BETA-1A

REACTIONS (3)
  - Depression [Not Recovered/Not Resolved]
  - Product use issue [Unknown]
  - Pain [Not Recovered/Not Resolved]
